FAERS Safety Report 4634685-1 (Version None)
Quarter: 2005Q2

REPORT INFORMATION
  Report Type: 
  Country: None (occurrence: None)
  Receive Date: 20050413
  Receipt Date: 20050330
  Transmission Date: 20051028
  Serious: Yes (Hospitalization)
  Sender: FDA-Public Use
  Company Number: 2002066875

PATIENT
  Age: 79 Year
  Sex: Female

DRUGS (5)
  1. ZOLOFT [Suspect]
     Indication: DEPRESSION
     Dosage: ORAL
     Route: 048
     Dates: start: 20020701, end: 20020720
  2. SALURES (BENDROFLUMETHIAZIDE) [Suspect]
     Indication: HYPERTENSION
     Dosage: ORAL
     Route: 048
     Dates: end: 20020720
  3. METOPROLOL TARTRATE [Concomitant]
  4. FELODIPINE [Concomitant]
  5. DICLOFENAC SODIUM [Concomitant]

REACTIONS (10)
  - FALL [None]
  - FATIGUE [None]
  - HYPOKALAEMIA [None]
  - HYPONATRAEMIA [None]
  - NAUSEA [None]
  - PERSONALITY DISORDER [None]
  - URINARY TRACT INFECTION [None]
  - URINE SODIUM DECREASED [None]
  - VERTIGO [None]
  - WOUND [None]
